FAERS Safety Report 9414673 (Version 1)
Quarter: 2013Q3

REPORT INFORMATION
  Report Type: Report from Study
  Country: CN (occurrence: CN)
  Receive Date: 20130723
  Receipt Date: 20130723
  Transmission Date: 20140515
  Serious: Yes (Other)
  Sender: FDA-Public Use
  Company Number: CN-ROCHE-1251951

PATIENT
  Age: 64 Year
  Sex: Female

DRUGS (2)
  1. PEGASYS [Suspect]
     Indication: HEPATITIS C
     Route: 058
     Dates: start: 201306, end: 201307
  2. RIBAVIRIN [Concomitant]
     Indication: HEPATITIS C
     Dosage: 6 PILLS PER DAY
     Route: 048
     Dates: start: 201306, end: 201307

REACTIONS (4)
  - Hepatitis C RNA increased [Unknown]
  - Tinnitus [Unknown]
  - Vision blurred [Unknown]
  - Alanine aminotransferase increased [Unknown]
